FAERS Safety Report 8045270-6 (Version None)
Quarter: 2012Q1

REPORT INFORMATION
  Report Type: 
  Country: None (occurrence: None)
  Receive Date: 20120113
  Receipt Date: 20120106
  Transmission Date: 20120608
  Serious: Yes (Death)
  Sender: FDA-Public Use
  Company Number: IN-PFIZER INC-2012005564

PATIENT
  Age: 58 Year
  Sex: Female
  Weight: 70 kg

DRUGS (1)
  1. DEPO-MEDROL [Suspect]
     Indication: OSTEOARTHRITIS
     Dosage: 1.5 ML, SINGLE
     Route: 014
     Dates: start: 20111231

REACTIONS (1)
  - DEATH [None]
